FAERS Safety Report 7521964-3 (Version None)
Quarter: 2011Q2

REPORT INFORMATION
  Report Type: 
  Country: None (occurrence: None)
  Receive Date: 20110603
  Receipt Date: 20110507
  Transmission Date: 20111010
  Serious: Yes (Other)
  Sender: FDA-Public Use
  Company Number: US-BAYER-2011-039978

PATIENT
  Sex: Female

DRUGS (2)
  1. ADVIL LIQUI-GELS [Concomitant]
  2. ALEVE (CAPLET) [Suspect]
     Route: 048

REACTIONS (1)
  - GASTRIC ULCER [None]
